FAERS Safety Report 23836335 (Version 2)
Quarter: 2025Q2

REPORT INFORMATION
  Report Type: Spontaneous
  Country: BE (occurrence: BE)
  Receive Date: 20240509
  Receipt Date: 20250616
  Transmission Date: 20250716
  Serious: Yes (Life-Threatening)
  Sender: SANDOZ
  Company Number: None

PATIENT
  Sex: Male
  Weight: 90 kg

DRUGS (8)
  1. CEFAZOLIN [Suspect]
     Active Substance: CEFAZOLIN
     Indication: Product used for unknown indication
     Route: 042
     Dates: start: 20240416, end: 20240416
  2. CLONIDINE [Suspect]
     Active Substance: CLONIDINE
     Indication: Analgesic therapy
     Route: 042
     Dates: start: 20240416, end: 20240416
  3. LIDOCAINE [Suspect]
     Active Substance: LIDOCAINE
     Indication: Local anaesthesia
     Route: 065
     Dates: start: 20240416, end: 20240416
  4. ACETAMINOPHEN [Suspect]
     Active Substance: ACETAMINOPHEN
     Indication: Analgesic therapy
     Route: 042
     Dates: start: 20240416, end: 20240416
  5. PROPOFOL [Suspect]
     Active Substance: PROPOFOL
     Indication: Anaesthesia
     Route: 042
     Dates: start: 20240416, end: 20240416
  6. ROCURONIUM [Suspect]
     Active Substance: ROCURONIUM BROMIDE
     Indication: Product used for unknown indication
     Route: 042
     Dates: start: 20240416, end: 20240416
  7. ROPIVACAINE [Suspect]
     Active Substance: ROPIVACAINE
     Indication: Local anaesthesia
     Route: 058
     Dates: start: 20240416, end: 20240416
  8. VOLTAREN [Suspect]
     Active Substance: DICLOFENAC SODIUM
     Indication: Analgesic therapy
     Route: 042
     Dates: start: 20240416, end: 20240416

REACTIONS (4)
  - Hypoxia [Unknown]
  - Hypotension [Unknown]
  - Anaphylactic reaction [Unknown]
  - Erythema [Unknown]

NARRATIVE: CASE EVENT DATE: 20240416
